FAERS Safety Report 21075056 (Version 1)
Quarter: 2022Q3

REPORT INFORMATION
  Report Type: Report from Study
  Country: US (occurrence: US)
  Receive Date: 20220713
  Receipt Date: 20220713
  Transmission Date: 20221027
  Serious: Yes (Hospitalization, Other)
  Sender: FDA-Public Use
  Company Number: US-ABBVIE-22K-163-4460078-00

PATIENT
  Age: 50 Year
  Sex: Female

DRUGS (3)
  1. SKYRIZI [Suspect]
     Active Substance: RISANKIZUMAB-RZAA
     Indication: Psoriasis
     Route: 058
     Dates: start: 20211103, end: 20220523
  2. MODERNA COVID-19 VACCINE [Concomitant]
     Active Substance: ELASOMERAN
     Indication: COVID-19 immunisation
     Dosage: 1ST DOSE
     Route: 030
     Dates: start: 20210218, end: 20210218
  3. MODERNA COVID-19 VACCINE [Concomitant]
     Active Substance: ELASOMERAN
     Dosage: 2ND DOSE
     Route: 030
     Dates: start: 20210318, end: 20210318

REACTIONS (8)
  - Cerebral haemorrhage [Unknown]
  - Head injury [Unknown]
  - Skin ulcer [Unknown]
  - Skin lesion [Recovering/Resolving]
  - Liver function test increased [Recovering/Resolving]
  - Fall [Unknown]
  - Scar [Unknown]
  - Scab [Unknown]

NARRATIVE: CASE EVENT DATE: 20220501
